FAERS Safety Report 5782694-1 (Version None)
Quarter: 2008Q2

REPORT INFORMATION
  Report Type: 
  Country: None (occurrence: None)
  Receive Date: 20080619
  Receipt Date: 20080619
  Transmission Date: 20081010
  Serious: Yes (Hospitalization, Other)
  Sender: FDA-Public Use
  Company Number: None

PATIENT
  Age: 20 Year
  Sex: Female
  Weight: 54.4316 kg

DRUGS (2)
  1. GEODON [Suspect]
     Indication: DEPRESSION
     Dosage: 20 MG. ONE IN A.M. PO, 20 MG. ONE IN P.M. PO
     Route: 048
     Dates: start: 20080613, end: 20080617
  2. GEODON [Suspect]

REACTIONS (3)
  - CONVULSION [None]
  - HYPOVENTILATION [None]
  - MALAISE [None]
